FAERS Safety Report 8243562-9 (Version None)
Quarter: 2012Q1

REPORT INFORMATION
  Report Type: 
  Country: None (occurrence: None)
  Receive Date: 20120329
  Receipt Date: 20120327
  Transmission Date: 20120608
  Serious: Yes (Life-Threatening)
  Sender: FDA-Public Use
  Company Number: PHHY2012FR013384

PATIENT
  Sex: Male
  Weight: 70 kg

DRUGS (5)
  1. LEVOTHYROXINE SODIUM [Suspect]
     Dosage: 1 DF, QD
     Route: 048
  2. RASILEZ [Suspect]
     Indication: HYPERTENSION
     Dosage: 1 DF, QD
  3. CORDARONE [Suspect]
     Dosage: 1 DF, QD
     Route: 048
  4. PREVISCAN [Suspect]
     Dosage: 0.5-0.75 DF DAILY
     Route: 048
  5. IPERTEN [Suspect]
     Dosage: 1 DF, QD
     Route: 048

REACTIONS (2)
  - EXTRASYSTOLES [None]
  - BRADYCARDIA [None]
